FAERS Safety Report 7558808-X (Version None)
Quarter: 2011Q2

REPORT INFORMATION
  Report Type: 
  Country: None (occurrence: None)
  Receive Date: 20110621
  Receipt Date: 20110617
  Transmission Date: 20111010
  Serious: Yes (Other)
  Sender: FDA-Public Use
  Company Number: US-ASTRAZENECA-2009UW20790

PATIENT
  Sex: Male

DRUGS (6)
  1. ZYPREXA [Concomitant]
     Dates: start: 20050901
  2. LIBRIUM [Concomitant]
     Dates: start: 20050920, end: 20081113
  3. SEROQUEL [Suspect]
     Dosage: 300
     Route: 048
     Dates: start: 20050920, end: 20081113
  4. RITALIN-SR [Concomitant]
     Dosage: 40-40
     Dates: start: 20050920
  5. CELEXA [Concomitant]
     Dosage: 80
     Dates: start: 20050920
  6. AMBIEN [Concomitant]
     Dates: start: 20050920

REACTIONS (5)
  - RETINOPATHY [None]
  - KETOACIDOSIS [None]
  - TYPE 2 DIABETES MELLITUS [None]
  - PANCREATITIS [None]
  - DIABETIC NEUROPATHY [None]
